FAERS Safety Report 16658608 (Version 1)
Quarter: 2019Q3

REPORT INFORMATION
  Report Type: Spontaneous
  Country: DE (occurrence: DE)
  Receive Date: 20190801
  Receipt Date: 20190801
  Transmission Date: 20191004
  Serious: Yes (Hospitalization, Other)
  Sender: FDA-Public Use
  Company Number: DE-MYLANLABS-2019M1071572

PATIENT

DRUGS (1)
  1. BACLOFEN. [Suspect]
     Active Substance: BACLOFEN
     Indication: FUNGAL SKIN INFECTION
     Dosage: 50 MILLIGRAM, TOTAL (50 MG ORALLY IN A SINGLE DOSE IN FORM OF FIVE TABLETS OF 10 MG)
     Route: 048

REACTIONS (8)
  - Medication error [Unknown]
  - Sleep disorder [Unknown]
  - Muscular weakness [Unknown]
  - Depressed level of consciousness [Unknown]
  - Drug abuse [Unknown]
  - Accidental overdose [Unknown]
  - Intentional product misuse [Unknown]
  - Product administration error [Unknown]
